FAERS Safety Report 16864201 (Version 1)
Quarter: 2019Q3

REPORT INFORMATION
  Report Type: Spontaneous
  Country: US (occurrence: US)
  Receive Date: 20190927
  Receipt Date: 20190927
  Transmission Date: 20191005
  Serious: No
  Sender: FDA-Public Use
  Company Number: US-SA-2019SA263951

PATIENT
  Age: 74 Year
  Sex: Female

DRUGS (1)
  1. ALLEGRA ALLERGY [Suspect]
     Active Substance: FEXOFENADINE HYDROCHLORIDE
     Indication: THROAT TIGHTNESS
     Dosage: 180 MG, QD
     Route: 048
     Dates: start: 20190918

REACTIONS (2)
  - Product taste abnormal [Unknown]
  - Drug ineffective for unapproved indication [Unknown]
